FAERS Safety Report 22623991 (Version 1)
Quarter: 2023Q2

REPORT INFORMATION
  Report Type: Report from Study
  Country: PT (occurrence: PT)
  Receive Date: 20230621
  Receipt Date: 20230621
  Transmission Date: 20230721
  Serious: Yes (Other)
  Sender: FDA-Public Use
  Company Number: PT-TEVA-2023-PT-2898390

PATIENT
  Age: 58 Year
  Sex: Female

DRUGS (5)
  1. FREMANEZUMAB [Suspect]
     Active Substance: FREMANEZUMAB
     Indication: Migraine
     Dosage: PREFILLED SYRINGE, INJECTION LOCATION LEFT UPPER ARM, LAST DOSE PRIOR TO AE: 04-JUL-2022
     Route: 065
     Dates: start: 20220331
  2. ACETAMINOPHEN [Concomitant]
     Active Substance: ACETAMINOPHEN
     Indication: Migraine
     Dosage: PRN
     Route: 048
  3. Tiocolquicoside+ paracetamol [Concomitant]
     Indication: Migraine
     Dosage: 4+600, PRN
     Route: 048
  4. METAMIZOLE [Concomitant]
     Active Substance: METAMIZOLE
     Indication: Migraine
     Dosage: PRN
     Route: 048
     Dates: start: 20220401
  5. BETAHISTINE [Concomitant]
     Active Substance: BETAHISTINE
     Indication: Vertigo
     Dosage: 48 MILLIGRAM DAILY;
     Route: 048
     Dates: start: 20220608, end: 20220613

REACTIONS (1)
  - Electrocardiogram QT prolonged [Recovered/Resolved]

NARRATIVE: CASE EVENT DATE: 20220808
